FAERS Safety Report 14185527 (Version 1)
Quarter: 2017Q4

REPORT INFORMATION
  Report Type: Spontaneous
  Country: US (occurrence: None)
  Receive Date: 20171112
  Receipt Date: 20171112
  Transmission Date: 20180321
  Serious: Yes (Other)
  Sender: FDA-Public Use
  Company Number: None

PATIENT
  Age: 51 Year
  Sex: Male

DRUGS (2)
  1. NINLARO [Suspect]
     Active Substance: IXAZOMIB CITRATE
     Indication: PLASMA CELL MYELOMA
     Dosage: FREQUENCY - ON DAY 1, 8 AND 15 OF 28 DAY CYCLE
     Route: 048
     Dates: start: 20170811, end: 20170926
  2. NINLARO [Suspect]
     Active Substance: IXAZOMIB CITRATE
     Indication: NEOPLASM RECURRENCE
     Dosage: FREQUENCY - ON DAY 1, 8 AND 15 OF 28 DAY CYCLE
     Route: 048
     Dates: start: 20170811, end: 20170926

REACTIONS (1)
  - Malaise [None]

NARRATIVE: CASE EVENT DATE: 20170926
